FAERS Safety Report 14276557 (Version 2)
Quarter: 2018Q1

REPORT INFORMATION
  Report Type: Spontaneous
  Country: ES (occurrence: ES)
  Receive Date: 20171211
  Receipt Date: 20180111
  Transmission Date: 20180508
  Serious: Yes (Hospitalization)
  Sender: FDA-Public Use
  Company Number: ES-OTSUKA-2015_000728

PATIENT
  Age: 12 Year
  Sex: Male

DRUGS (7)
  1. TOPIRAMATE. [Concomitant]
     Active Substance: TOPIRAMATE
     Indication: BIPOLAR DISORDER
     Dosage: 100 MG, BID
     Route: 065
  2. OLANZAPINE. [Concomitant]
     Active Substance: OLANZAPINE
     Indication: BIPOLAR DISORDER
     Dosage: 10 MG, QD
     Route: 065
  3. LISDEXAMFETAMINE [Concomitant]
     Active Substance: LISDEXAMFETAMINE
     Indication: ATTENTION DEFICIT/HYPERACTIVITY DISORDER
     Dosage: 70 MG, UNK
     Route: 065
  4. TOPIRAMATE. [Concomitant]
     Active Substance: TOPIRAMATE
     Indication: HYPERPHAGIA
     Dosage: 50 MG, UNK
     Route: 065
  5. ARIPIPRAZOLE. [Suspect]
     Active Substance: ARIPIPRAZOLE
     Indication: ABNORMAL BEHAVIOUR
     Dosage: 15 MG, QD
     Route: 048
     Dates: start: 20150101
  6. ARIPIPRAZOLE. [Suspect]
     Active Substance: ARIPIPRAZOLE
     Indication: BIPOLAR DISORDER
     Dosage: 10 MG, QD
     Route: 048
  7. LISDEXAMFETAMINE [Concomitant]
     Active Substance: LISDEXAMFETAMINE
     Indication: HYPERPHAGIA

REACTIONS (5)
  - Disorientation [Unknown]
  - Off label use [Unknown]
  - Abnormal behaviour [Recovered/Resolved]
  - Confusional state [Recovered/Resolved]
  - Pyrexia [Recovered/Resolved]

NARRATIVE: CASE EVENT DATE: 20150101
